FAERS Safety Report 6977033-4 (Version None)
Quarter: 2010Q3

REPORT INFORMATION
  Report Type: 
  Country: None (occurrence: None)
  Receive Date: 20100910
  Receipt Date: 20100902
  Transmission Date: 20110219
  Serious: No
  Sender: FDA-Public Use
  Company Number: US-ROXANE LABORATORIES, INC.-2010-RO-01201RO

PATIENT
  Sex: Male

DRUGS (2)
  1. ROPINIROLE [Suspect]
     Indication: RESTLESS LEGS SYNDROME
     Dosage: 2 MG
     Route: 048
     Dates: start: 20080821
  2. ROPINIROLE [Suspect]
     Dosage: 2 MG
     Route: 048
     Dates: start: 20090825

REACTIONS (1)
  - VOMITING [None]
